FAERS Safety Report 5493268-4 (Version None)
Quarter: 2007Q4

REPORT INFORMATION
  Report Type: 
  Country: None (occurrence: None)
  Receive Date: 20071023
  Receipt Date: 20071010
  Transmission Date: 20080405
  Serious: Yes (Death)
  Sender: FDA-Public Use
  Company Number: BE-AMGEN-US248026

PATIENT
  Age: 65 Year
  Sex: Female

DRUGS (7)
  1. ENBREL [Suspect]
     Indication: RHEUMATOID ARTHRITIS
     Route: 058
     Dates: start: 20070119
  2. BROMAZEPAM [Concomitant]
     Indication: ANXIETY
  3. CONTRAMAL [Concomitant]
     Indication: RHEUMATOID ARTHRITIS
  4. URFADYN [Concomitant]
     Indication: DYSURIA
  5. LEDERTREXATE [Concomitant]
     Indication: RHEUMATOID ARTHRITIS
     Dates: start: 19950101
  6. MEDROL [Concomitant]
     Indication: RHEUMATOID ARTHRITIS
     Route: 048
     Dates: start: 20000101
  7. TRAZOLAN [Concomitant]
     Indication: ANXIETY

REACTIONS (1)
  - CARDIOPULMONARY FAILURE [None]
